FAERS Safety Report 8267855-4 (Version None)
Quarter: 2012Q2

REPORT INFORMATION
  Report Type: 
  Country: None (occurrence: None)
  Receive Date: 20120404
  Receipt Date: 20120326
  Transmission Date: 20120825
  Serious: Yes (Hospitalization)
  Sender: FDA-Public Use
  Company Number: 2012MA004196

PATIENT
  Age: 44 Year
  Sex: Female

DRUGS (1)
  1. PACLITAXEL [Suspect]
     Indication: BREAST CANCER FEMALE
     Dosage: 160 MG;QD;IV
     Route: 042

REACTIONS (5)
  - FLUSHING [None]
  - HYPERHIDROSIS [None]
  - CHEST DISCOMFORT [None]
  - RESPIRATORY DISTRESS [None]
  - ANXIETY [None]
